FAERS Safety Report 9269905 (Version 2)
Quarter: 2013Q4

REPORT INFORMATION
  Report Type: Spontaneous
  Country: JP (occurrence: JP)
  Receive Date: 20130503
  Receipt Date: 20131211
  Transmission Date: 20140711
  Serious: Yes (Life-Threatening, Hospitalization, Other)
  Sender: FDA-Public Use
  Company Number: JP-SANOFI-AVENTIS-2013SA039198

PATIENT
  Age: 63 Year
  Sex: Male
  Weight: 61 kg

DRUGS (15)
  1. ELPLAT [Suspect]
     Indication: RECTAL CANCER
     Route: 041
     Dates: start: 20120730, end: 20120730
  2. ELPLAT [Suspect]
     Indication: RECTAL CANCER
     Route: 041
     Dates: start: 20120820, end: 20120820
  3. CAPECITABINE [Suspect]
     Indication: RECTAL CANCER
     Route: 048
     Dates: start: 20120730, end: 20120813
  4. CAPECITABINE [Suspect]
     Indication: RECTAL CANCER
     Route: 048
     Dates: start: 20120820, end: 20120903
  5. LOPERAMIDE HYDROCHLORIDE [Concomitant]
     Dates: start: 20120905, end: 20120909
  6. RED BLOOD CELLS, CONCENTRATED [Concomitant]
     Dates: start: 20120923, end: 20120926
  7. PLASMA PROTEIN FRACTION (HUMAN) [Concomitant]
     Dates: start: 20120920, end: 20120925
  8. SODIUM LACTATE/CALCIUM CHLORIDE ANHYDROUS/SODIUM CHLORIDE/POTASSIUM CHLORIDE [Concomitant]
     Dates: start: 20120905
  9. GLUCOSE/POTASSIUM CHLORIDE/SODIUM CHLORIDE/SODIUM LACTATE [Concomitant]
     Dates: start: 20120905
  10. AMINO ACIDS NOS/ELECTROLYTES NOS/MALIC ACID [Concomitant]
     Dates: start: 20120905
  11. CEFMETAZOLE SODIUM [Concomitant]
     Dates: start: 20120906, end: 20120912
  12. CEFTAZIDIME [Concomitant]
     Dates: start: 20120913, end: 20120915
  13. MEROPENEM [Concomitant]
     Dates: start: 20120916, end: 20121003
  14. CEFOTIAM HYDROCHLORIDE [Concomitant]
     Dates: start: 20120922, end: 20120924
  15. FLUCONAZOLE [Concomitant]
     Dates: start: 20120920, end: 20121006

REACTIONS (4)
  - Gastrointestinal haemorrhage [Recovered/Resolved]
  - Pneumoperitoneum [Recovering/Resolving]
  - Blood pressure decreased [Recovered/Resolved]
  - Diarrhoea [Recovered/Resolved]
